FAERS Safety Report 25058777 (Version 2)
Quarter: 2025Q2

REPORT INFORMATION
  Report Type: Report from Study
  Country: US (occurrence: US)
  Receive Date: 20250310
  Receipt Date: 20250410
  Transmission Date: 20250716
  Serious: Yes (Other)
  Sender: BAUSCH AND LOMB
  Company Number: US-BAUSCHBL-2025BNL003956

PATIENT
  Age: 75 Year
  Sex: Male
  Weight: 113 kg

DRUGS (1)
  1. MIEBO [Suspect]
     Active Substance: PERFLUOROHEXYLOCTANE
     Indication: Dry eye
     Dosage: 1 DROP EACH EYE TWICE A DAY
     Route: 065

REACTIONS (6)
  - Glaucoma [Unknown]
  - Visual impairment [Unknown]
  - Product knowledge deficit [Unknown]
  - Product use issue [Unknown]
  - Product complaint [Unknown]
  - Inappropriate schedule of product administration [Unknown]

NARRATIVE: CASE EVENT DATE: 20250201
